FAERS Safety Report 7556823-3 (Version None)
Quarter: 2011Q2

REPORT INFORMATION
  Report Type: 
  Country: None (occurrence: None)
  Receive Date: 20110620
  Receipt Date: 20110606
  Transmission Date: 20111010
  Serious: Yes (Life-Threatening, Other)
  Sender: FDA-Public Use
  Company Number: DK-JNJFOC-20110600734

PATIENT
  Sex: Female

DRUGS (10)
  1. METHOTREXATE [Concomitant]
     Route: 065
     Dates: start: 20110321, end: 20110505
  2. SULFASALAZINE [Concomitant]
     Indication: RHEUMATOID ARTHRITIS
     Route: 065
     Dates: start: 20080108, end: 20100412
  3. SULFASALAZINE [Concomitant]
     Route: 065
     Dates: start: 20110506, end: 20110506
  4. METHOTREXATE [Concomitant]
     Route: 065
     Dates: start: 20070312, end: 20070430
  5. LEFLUNOMIDE [Concomitant]
     Indication: RHEUMATOID ARTHRITIS
     Route: 065
     Dates: start: 20100413, end: 20100613
  6. METHOTREXATE [Concomitant]
     Route: 065
     Dates: start: 20060919, end: 20070101
  7. PREDNISOLONE [Concomitant]
     Indication: RHEUMATOID ARTHRITIS
     Route: 065
     Dates: start: 20100701, end: 20110506
  8. SULFASALAZINE [Concomitant]
     Route: 065
     Dates: start: 20100614, end: 20110320
  9. REMICADE [Suspect]
     Indication: RHEUMATOID ARTHRITIS
     Route: 042
     Dates: start: 20110321, end: 20110506
  10. METHOTREXATE [Concomitant]
     Route: 065
     Dates: start: 20071022, end: 20080108

REACTIONS (2)
  - SHOCK [None]
  - HYPERSENSITIVITY [None]
